FAERS Safety Report 6886541-6 (Version None)
Quarter: 2010Q3

REPORT INFORMATION
  Report Type: 
  Country: None (occurrence: None)
  Receive Date: 20100730
  Receipt Date: 20100722
  Transmission Date: 20110219
  Serious: No
  Sender: FDA-Public Use
  Company Number: US-BIOGENIDEC-2010BI005035

PATIENT
  Sex: Female

DRUGS (1)
  1. TYSABRI [Suspect]
     Indication: MULTIPLE SCLEROSIS
     Route: 042
     Dates: start: 20091009, end: 20100105

REACTIONS (4)
  - CONTUSION [None]
  - LEUKOCYTOCLASTIC VASCULITIS [None]
  - PERIPHERAL SENSORY NEUROPATHY [None]
  - RAYNAUD'S PHENOMENON [None]
